FAERS Safety Report 4883982-3 (Version None)
Quarter: 2006Q1

REPORT INFORMATION
  Report Type: 
  Country: None (occurrence: None)
  Receive Date: 20060117
  Receipt Date: 20060106
  Transmission Date: 20060701
  Serious: Yes (Death)
  Sender: FDA-Public Use
  Company Number: CHPA2006US00717

PATIENT
  Age: 58 Year
  Sex: Female
  Weight: 101.1 kg

DRUGS (14)
  1. EXCEDRIN EXTRA STRENGTH (NCH) (CAFFEINE CITRATE, ACETYLSALICYLIC ACID, [Suspect]
     Indication: BACK PAIN
     Dosage: 250 MG, ORAL
     Route: 048
     Dates: start: 19851111
  2. CARISOPRODOL [Concomitant]
  3. HYDROCODONE BITARTRATE + ACETAMINOPHEN [Concomitant]
  4. TRAMADOL HCL [Concomitant]
  5. ASPIRIN [Concomitant]
  6. MORPHINE [Concomitant]
  7. METHOCARBAMOL [Concomitant]
  8. XYLOCAINE [Concomitant]
  9. CORTISONE ACETATE [Concomitant]
  10. SUMATRIPTAN SUCCINATE [Concomitant]
  11. FEXOFENADINE HCL [Concomitant]
  12. DIPHENHYDRAMINE HCL [Concomitant]
  13. HYDROCODONE BITARTRATE [Concomitant]
  14. ALL OTHER THERAPEUTIC PRODUCTS [Concomitant]

REACTIONS (3)
  - GASTROINTESTINAL NECROSIS [None]
  - MUSCLE SPASMS [None]
  - NASOPHARYNGITIS [None]
